FAERS Safety Report 7658160-5 (Version None)
Quarter: 2011Q3

REPORT INFORMATION
  Report Type: 
  Country: None (occurrence: None)
  Receive Date: 20110805
  Receipt Date: 20110727
  Transmission Date: 20111222
  Serious: No
  Sender: FDA-Public Use
  Company Number: PHHY2011JP60884

PATIENT
  Age: 61 Year
  Sex: Male

DRUGS (3)
  1. EPADEL [Suspect]
     Dosage: UNK UKN, UNK
     Route: 048
     Dates: start: 20110704, end: 20110705
  2. VOLTAREN [Suspect]
     Indication: HERNIA
     Dosage: 37.5 MG, DAILY
     Route: 048
     Dates: start: 20110704, end: 20110705
  3. VOLTAREN [Suspect]
     Indication: HERNIA
     Dosage: 25 MG, DAILY
     Route: 054
     Dates: start: 20110704, end: 20110705

REACTIONS (2)
  - CHROMATURIA [None]
  - RHABDOMYOLYSIS [None]
